FAERS Safety Report 7527060-3 (Version None)
Quarter: 2011Q2

REPORT INFORMATION
  Report Type: 
  Country: None (occurrence: None)
  Receive Date: 20110606
  Receipt Date: 20110531
  Transmission Date: 20111010
  Serious: Yes (Disabling)
  Sender: FDA-Public Use
  Company Number: US-GILEAD-2011-0039634

PATIENT
  Sex: Female

DRUGS (12)
  1. FORSEMIDE [Concomitant]
     Dates: start: 20110401
  2. FLUOXETINE HCL [Concomitant]
     Dates: start: 20110401
  3. BENICAR [Concomitant]
     Dates: start: 20110401
  4. POTASSIUM CHLORIDE [Concomitant]
     Dates: start: 20110401
  5. SIMVASTATIN [Concomitant]
     Dates: start: 20110401
  6. CALCIUM CARBONATE [Concomitant]
     Dates: start: 20110401
  7. LEVOTHYROXINE SODIUM [Concomitant]
     Dates: start: 20110401
  8. M.V.I. [Concomitant]
     Dates: start: 20110401
  9. LETAIRIS [Suspect]
     Indication: PRODUCT USED FOR UNKNOWN INDICATION
     Route: 048
     Dates: start: 20110422, end: 20110524
  10. FLORASTOR [Concomitant]
     Dates: start: 20110401
  11. LISINOPRIL [Concomitant]
     Dates: start: 20110401
  12. PROTONIX [Concomitant]
     Dates: start: 20110401

REACTIONS (13)
  - ABASIA [None]
  - DIARRHOEA [None]
  - ABDOMINAL PAIN UPPER [None]
  - CHEST PAIN [None]
  - BLOOD PRESSURE DECREASED [None]
  - DECREASED APPETITE [None]
  - RHINORRHOEA [None]
  - DISORIENTATION [None]
  - PAIN IN EXTREMITY [None]
  - INSOMNIA [None]
  - SNEEZING [None]
  - DIZZINESS [None]
  - COUGH [None]
